FAERS Safety Report 16485243 (Version 1)
Quarter: 2019Q2

REPORT INFORMATION
  Report Type: Spontaneous
  Country: VN (occurrence: VN)
  Receive Date: 20190627
  Receipt Date: 20190627
  Transmission Date: 20190711
  Serious: Yes (Other)
  Sender: FDA-Public Use
  Company Number: VN-JNJFOC-20190623823

PATIENT
  Age: 65 Year

DRUGS (7)
  1. VINCRISTINE [Suspect]
     Active Substance: VINCRISTINE
     Indication: MARGINAL ZONE LYMPHOMA
     Route: 065
  2. RITUXIMAB. [Suspect]
     Active Substance: RITUXIMAB
     Indication: MARGINAL ZONE LYMPHOMA
     Route: 065
  3. PREDNISONE. [Suspect]
     Active Substance: PREDNISONE
     Indication: MARGINAL ZONE LYMPHOMA
     Route: 065
  4. BENDAMUSTINE HYDROCHLORIDE UNSPECIFIED [Suspect]
     Active Substance: BENDAMUSTINE HYDROCHLORIDE
     Indication: MARGINAL ZONE LYMPHOMA
     Route: 065
  5. CYCLOPHOSPHAMIDE. [Suspect]
     Active Substance: CYCLOPHOSPHAMIDE
     Indication: MARGINAL ZONE LYMPHOMA
     Route: 065
  6. DOXORUBICIN HYDROCHLORIDE. [Suspect]
     Active Substance: DOXORUBICIN HYDROCHLORIDE
     Indication: MARGINAL ZONE LYMPHOMA
     Route: 065
  7. IMBRUVICA [Suspect]
     Active Substance: IBRUTINIB
     Indication: PRODUCT USED FOR UNKNOWN INDICATION
     Dosage: 2 TABS DAILY.
     Route: 065
     Dates: start: 20190409

REACTIONS (5)
  - Platelet count decreased [Unknown]
  - White blood cell count decreased [Unknown]
  - Product use in unapproved indication [Unknown]
  - Marginal zone lymphoma refractory [Unknown]
  - Off label use [Unknown]
